FAERS Safety Report 10722353 (Version 3)
Quarter: 2015Q1

REPORT INFORMATION
  Report Type: Spontaneous
  Country: FR (occurrence: FR)
  Receive Date: 20150119
  Receipt Date: 20150127
  Transmission Date: 20150721
  Serious: Yes (Hospitalization, Other)
  Sender: FDA-Public Use
  Company Number: FR-009507513-1501FRA006570

PATIENT
  Sex: Female

DRUGS (26)
  1. FLAGYL [Suspect]
     Active Substance: METRONIDAZOLE\METRONIDAZOLE HYDROCHLORIDE
     Dosage: UNK
     Route: 048
     Dates: start: 20140620, end: 20140630
  2. SEROPLEX [Concomitant]
     Active Substance: ESCITALOPRAM OXALATE
     Dosage: UNK
     Route: 048
     Dates: start: 20140718, end: 20140804
  3. CLAMOXYL [Suspect]
     Active Substance: AMOXICILLIN\CLAVULANIC ACID
     Dosage: UNK
     Route: 042
     Dates: start: 20140616, end: 20140620
  4. CEFOTAXIME SODIUM [Suspect]
     Active Substance: CEFOTAXIME SODIUM
     Dosage: UNK
     Route: 042
     Dates: start: 20140610, end: 20140616
  5. BACTRIM [Suspect]
     Active Substance: SULFAMETHOXAZOLE\TRIMETHOPRIM
     Indication: ARTHRITIS BACTERIAL
     Dosage: UNK
     Dates: start: 20140618, end: 20140709
  6. HUMALOG [Concomitant]
     Active Substance: INSULIN LISPRO
     Route: 058
  7. TAZOCILLINE [Suspect]
     Active Substance: PIPERACILLIN SODIUM\TAZOBACTAM SODIUM
     Indication: ESCHERICHIA INFECTION
     Dosage: UNK
     Route: 042
     Dates: start: 20140808, end: 20140830
  8. INEXIUM (ESOMEPRAZOLE SODIUM) [Concomitant]
     Active Substance: ESOMEPRAZOLE
     Dosage: 20 MG, UNK
     Route: 048
     Dates: start: 20140618, end: 20140724
  9. TIENAM IV 250MG/250MG, POUDRE POUR PERFUSION [Suspect]
     Active Substance: CILASTATIN SODIUM\IMIPENEM
     Indication: DUODENAL PERFORATION
     Dosage: UNK
     Route: 042
     Dates: start: 20140804, end: 20140805
  10. TAVANIC [Suspect]
     Active Substance: LEVOFLOXACIN
     Indication: ARTHRITIS BACTERIAL
     Dosage: UNK
     Route: 048
     Dates: start: 20140618, end: 20140622
  11. VANCOMYCIN [Suspect]
     Active Substance: VANCOMYCIN
     Indication: CLOSTRIDIUM TEST POSITIVE
     Dosage: 125 MG, QID
     Route: 048
     Dates: start: 20140630, end: 20140728
  12. AMIKACIN [Suspect]
     Active Substance: AMIKACIN
     Indication: DUODENAL PERFORATION
     Dosage: UNK
     Dates: start: 20140804, end: 201408
  13. CANCIDAS [Concomitant]
     Active Substance: CASPOFUNGIN ACETATE
     Indication: CANDIDA INFECTION
     Dosage: UNK
     Route: 042
     Dates: start: 201408
  14. CYMEVAN IV [Concomitant]
     Active Substance: GANCICLOVIR
     Dosage: 500 MG, UNK
     Route: 042
     Dates: start: 20140805, end: 20140911
  15. HYDROCORTISONE HEMISUCCINATE [Suspect]
     Active Substance: HYDROCORTISONE HEMISUCCINATE
     Dosage: UNK
     Route: 042
     Dates: start: 20140805, end: 20140911
  16. LOVENOX [Concomitant]
     Active Substance: ENOXAPARIN SODIUM
     Route: 058
  17. KARDEGIC [Concomitant]
     Active Substance: ASPIRIN LYSINE
     Dosage: UNK
     Dates: start: 20140614, end: 20140719
  18. DEXAMETHASONE. [Suspect]
     Active Substance: DEXAMETHASONE
     Dosage: UNK
     Route: 042
     Dates: start: 20140610, end: 20140804
  19. LANTUS [Concomitant]
     Active Substance: INSULIN GLARGINE
     Route: 058
  20. ROVALCYTE [Concomitant]
     Active Substance: VALGANCICLOVIR HYDROCHLORIDE
     Dosage: 450 MG, UNK
     Route: 048
     Dates: start: 20140731, end: 20140804
  21. WELLVONE [Concomitant]
     Active Substance: ATOVAQUONE
     Dosage: UNK
     Dates: start: 20140728, end: 20140804
  22. ROCEPHIN [Concomitant]
     Active Substance: CEFTRIAXONE SODIUM
     Indication: BACTERAEMIA
     Route: 042
  23. GENTAMICIN. [Suspect]
     Active Substance: GENTAMICIN
     Dosage: UNK
     Route: 042
     Dates: start: 20140610, end: 20140610
  24. RIVOTRIL [Concomitant]
     Active Substance: CLONAZEPAM
     Dosage: UNK
     Route: 042
     Dates: start: 20140610, end: 20140610
  25. ACETAMINOPHEN. [Concomitant]
     Active Substance: ACETAMINOPHEN
     Dosage: STRENGTH 10 MG/ML
     Route: 042
     Dates: start: 20140610, end: 20140620
  26. CANCIDAS [Concomitant]
     Active Substance: CASPOFUNGIN ACETATE
     Indication: CANDIDA INFECTION

REACTIONS (7)
  - Bedridden [Recovering/Resolving]
  - Pancreatitis acute [Recovered/Resolved]
  - Mania [Recovered/Resolved]
  - Depression [Recovered/Resolved]
  - Cytomegalovirus infection [Recovered/Resolved]
  - Clostridium colitis [Recovered/Resolved]
  - Amyotrophy [Recovering/Resolving]

NARRATIVE: CASE EVENT DATE: 2014
